FAERS Safety Report 10055364 (Version 1)
Quarter: 2014Q2

REPORT INFORMATION
  Report Type: Spontaneous
  Country: US (occurrence: US)
  Receive Date: 20140403
  Receipt Date: 20140403
  Transmission Date: 20141212
  Serious: No
  Sender: FDA-Public Use
  Company Number: US-BIOGENIDEC-2014BI017646

PATIENT
  Age: 51 Year
  Sex: Female

DRUGS (1)
  1. AVONEX [Suspect]
     Indication: MULTIPLE SCLEROSIS
     Route: 030
     Dates: start: 20070821

REACTIONS (8)
  - Fall [Recovered/Resolved]
  - Eye swelling [Not Recovered/Not Resolved]
  - Joint injury [Recovered/Resolved]
  - Arthritis [Not Recovered/Not Resolved]
  - Influenza like illness [Recovered/Resolved]
  - Multiple sclerosis relapse [Recovered/Resolved]
  - Urticaria [Not Recovered/Not Resolved]
  - Lip swelling [Not Recovered/Not Resolved]
